FAERS Safety Report 8146674-3 (Version None)
Quarter: 2012Q1

REPORT INFORMATION
  Report Type: 
  Country: None (occurrence: None)
  Receive Date: 20120217
  Receipt Date: 20110923
  Transmission Date: 20120608
  Serious: No
  Sender: FDA-Public Use
  Company Number: US-ABBOTT-11P-163-0857283-00

PATIENT
  Sex: Male

DRUGS (3)
  1. UNSPECIFIED THYROID MEDICATION [Concomitant]
     Indication: PRODUCT USED FOR UNKNOWN INDICATION
  2. VITAMIN D [Concomitant]
     Indication: PRODUCT USED FOR UNKNOWN INDICATION
  3. SIMCOR [Suspect]
     Indication: HIGH DENSITY LIPOPROTEIN DECREASED
     Dates: start: 20110801

REACTIONS (2)
  - INITIAL INSOMNIA [None]
  - FATIGUE [None]
